FAERS Safety Report 18712081 (Version 1)
Quarter: 2021Q1

REPORT INFORMATION
  Report Type: Spontaneous
  Country: US (occurrence: US)
  Receive Date: 20210106
  Receipt Date: 20210106
  Transmission Date: 20210419
  Serious: No
  Sender: FDA-Public Use
  Company Number: None

PATIENT
  Sex: Female

DRUGS (1)
  1. DEFEROXAMINE ++ MESYL SDV [Suspect]
     Active Substance: DEFEROXAMINE MESYLATE
     Indication: TOXICITY TO VARIOUS AGENTS
     Dosage: ?          OTHER FREQUENCY:EVERY8HOUR;?
     Route: 058
     Dates: start: 20201118

REACTIONS (3)
  - Abdominal pain upper [None]
  - SARS-CoV-2 test positive [None]
  - Sickle cell anaemia with crisis [None]
